FAERS Safety Report 4508014-8 (Version None)
Quarter: 2004Q4

REPORT INFORMATION
  Report Type: 
  Country: None (occurrence: None)
  Receive Date: 20041122
  Receipt Date: 20041122
  Transmission Date: 20050328
  Serious: Yes (Hospitalization)
  Sender: FDA-Public Use
  Company Number: None

PATIENT
  Sex: Male
  Weight: 63.5036 kg

DRUGS (13)
  1. NOVOLOG [Suspect]
     Indication: DIABETES MELLITUS NON-INSULIN-DEPENDENT
     Dosage: 80 UNITS  WITH  Q MEAL SUBCUTANEOUS
     Route: 058
     Dates: start: 20041014, end: 20041014
  2. NOVOLOG [Suspect]
     Indication: DIABETES MELLITUS NON-INSULIN-DEPENDENT
     Dosage: 10 UNITS   WITH Q MEAL  SUBCUTANEOUS
     Route: 058
     Dates: start: 20041015, end: 20041015
  3. ALLEGRA [Concomitant]
  4. LIPITOR [Concomitant]
  5. FLUOXETINE [Concomitant]
  6. WARFARIN [Concomitant]
  7. NEURONTIN [Concomitant]
  8. DARVOCET-N 100 [Concomitant]
  9. NORVASC [Concomitant]
  10. FLU VACCINE [Concomitant]
  11. AMBIEN [Concomitant]
  12. VALIUM [Concomitant]
  13. CORTROSYN [Concomitant]

REACTIONS (1)
  - HYPOGLYCAEMIA [None]
